FAERS Safety Report 16085293 (Version 3)
Quarter: 2020Q1

REPORT INFORMATION
  Report Type: Spontaneous
  Country: JP (occurrence: JP)
  Receive Date: 20190318
  Receipt Date: 20200313
  Transmission Date: 20200409
  Serious: Yes (Death, Hospitalization, Other)
  Sender: FDA-Public Use
  Company Number: JP-009507513-1812JPN002590J

PATIENT
  Age: 67 Year
  Sex: Male
  Weight: 55 kg

DRUGS (9)
  1. EXCEGRAN [Concomitant]
     Active Substance: ZONISAMIDE
     Indication: EPILEPSY
     Dosage: 100 MILLIGRAM, BID
     Route: 048
     Dates: start: 20161019, end: 20191113
  2. E KEPPRA [Concomitant]
     Active Substance: LEVETIRACETAM
     Indication: PROPHYLAXIS
  3. DECADRON [Concomitant]
     Active Substance: DEXAMETHASONE
     Dosage: UNK, 0.5~1MG
     Route: 065
  4. KEYTRUDA [Suspect]
     Active Substance: PEMBROLIZUMAB
     Indication: NON-SMALL CELL LUNG CANCER
     Dosage: 200 MILLIGRAM, Q3W
     Route: 041
     Dates: start: 20181120, end: 20181213
  5. EXCEGRAN [Concomitant]
     Active Substance: ZONISAMIDE
     Indication: SEIZURE PROPHYLAXIS
  6. E KEPPRA [Concomitant]
     Active Substance: LEVETIRACETAM
     Indication: EPILEPSY
     Dosage: 500 MILLIGRAM, BID
     Route: 048
     Dates: start: 20180609, end: 20191113
  7. JANUVIA [Concomitant]
     Active Substance: SITAGLIPTIN PHOSPHATE
     Indication: TYPE 2 DIABETES MELLITUS
     Dosage: 25MG/DAY
     Route: 048
     Dates: start: 20161019, end: 20191113
  8. AMLODIPINE [Concomitant]
     Active Substance: AMLODIPINE BESYLATE
     Indication: HYPERTENSION
     Dosage: 5 MILLIGRAM, QD
     Route: 048
     Dates: start: 201609, end: 20191113
  9. PITAVASTATIN CALCIUM [Concomitant]
     Active Substance: PITAVASTATIN CALCIUM
     Indication: HYPERLIPIDAEMIA
     Dosage: 1 MILLIGRAM, QD
     Route: 048
     Dates: start: 201609, end: 20191113

REACTIONS (5)
  - Parotitis [Recovering/Resolving]
  - Diarrhoea [Recovered/Resolved]
  - Malignant neoplasm progression [Unknown]
  - Death [Fatal]
  - Liver disorder [Recovering/Resolving]

NARRATIVE: CASE EVENT DATE: 20181217
